FAERS Safety Report 18841698 (Version 1)
Quarter: 2021Q1

REPORT INFORMATION
  Report Type: Spontaneous
  Country: CZ (occurrence: CZ)
  Receive Date: 20210203
  Receipt Date: 20210203
  Transmission Date: 20210419
  Serious: Yes (Other)
  Sender: FDA-Public Use
  Company Number: CZ-ALLERGAN-2104999US

PATIENT
  Sex: Female

DRUGS (1)
  1. LEVONORGESTREL ? BP [Suspect]
     Active Substance: LEVONORGESTREL
     Indication: CONTRACEPTION
     Dosage: 52 MG; AT AN INITIAL RELEASE RATE OF 20 MICROGRAMS PER 24 HOURS
     Route: 015
     Dates: start: 201904, end: 20191112

REACTIONS (5)
  - Complication of device removal [Recovered/Resolved]
  - Back pain [Recovering/Resolving]
  - Abdominal pain [Recovering/Resolving]
  - Device dislocation [Recovered/Resolved]
  - Vaginal discharge [Unknown]

NARRATIVE: CASE EVENT DATE: 20191112
